FAERS Safety Report 14965236 (Version 1)
Quarter: 2018Q2

REPORT INFORMATION
  Report Type: Spontaneous
  Country: US (occurrence: US)
  Receive Date: 20180601
  Receipt Date: 20180601
  Transmission Date: 20180711
  Serious: No
  Sender: FDA-Public Use
  Company Number: US-TEVA-2018-US-897508

PATIENT
  Sex: Male

DRUGS (1)
  1. FENTANYL. [Suspect]
     Active Substance: FENTANYL

REACTIONS (4)
  - Product adhesion issue [Unknown]
  - Product solubility abnormal [Unknown]
  - Erythema [Unknown]
  - Pruritus [Unknown]
